FAERS Safety Report 7304939-9 (Version None)
Quarter: 2011Q1

REPORT INFORMATION
  Report Type: 
  Country: None (occurrence: None)
  Receive Date: 20110222
  Receipt Date: 20110218
  Transmission Date: 20110831
  Serious: Yes (Hospitalization, Other)
  Sender: FDA-Public Use
  Company Number: US-AMGEN-USASP2011002900

PATIENT
  Age: 69 Year
  Sex: Male

DRUGS (12)
  1. CELEXA [Concomitant]
  2. PREDNISONE [Concomitant]
     Dosage: 5 MG, TID
     Route: 048
     Dates: start: 20100413
  3. COLCHICINE [Concomitant]
  4. LORATADINE [Concomitant]
  5. NPLATE [Suspect]
     Indication: IDIOPATHIC THROMBOCYTOPENIC PURPURA
     Dates: start: 20100427, end: 20101208
  6. LISINOPRIL [Concomitant]
  7. AMLODIPINE [Concomitant]
  8. NIACIN [Concomitant]
  9. ALLOPURINOL [Concomitant]
  10. COREG [Concomitant]
  11. MULTI VITAMIN AND MINERAL + SELENIUM [Concomitant]
  12. FISH OIL [Concomitant]

REACTIONS (2)
  - THROMBOCYTOPENIA [None]
  - DRUG INEFFECTIVE [None]
